FAERS Safety Report 4919192-0 (Version None)
Quarter: 2006Q1

REPORT INFORMATION
  Report Type: 
  Country: None (occurrence: None)
  Receive Date: 20060222
  Receipt Date: 20050413
  Transmission Date: 20060701
  Serious: Yes (Hospitalization, Other)
  Sender: FDA-Public Use
  Company Number: JP-NOVOPROD-243580

PATIENT
  Age: 15 Year
  Sex: Male
  Weight: 42 kg

DRUGS (2)
  1. NORDITROPIN SIMPLEXX [Suspect]
     Indication: GROWTH HORMONE DEFICIENCY
     Dosage: 1.5 MG, 5 TIMES IN A WEEK
     Route: 058
     Dates: start: 20041124, end: 20041224
  2. NORDITROPIN NORDIFLEX [Suspect]
     Indication: GROWTH HORMONE DEFICIENCY
     Dosage: 1.5 MG, 5 TIMES IN A WEEK
     Route: 058
     Dates: start: 20050121, end: 20050218

REACTIONS (2)
  - CONDITION AGGRAVATED [None]
  - MEDULLOBLASTOMA [None]
